FAERS Safety Report 6405734-5 (Version None)
Quarter: 2009Q4

REPORT INFORMATION
  Report Type: 
  Country: None (occurrence: None)
  Receive Date: 20091016
  Receipt Date: 20091016
  Transmission Date: 20100525
  Serious: Yes (Hospitalization)
  Sender: FDA-Public Use
  Company Number: None

PATIENT
  Sex: Female
  Weight: 90.7194 kg

DRUGS (2)
  1. CELADRIN -INFLAME AWAY [Suspect]
     Indication: ARTHRITIS
     Dosage: 2 TABLETS A DAY
     Dates: start: 20090401
  2. CELADRIN -INFLAME AWAY [Suspect]
     Indication: ARTHRITIS
     Dosage: 2 TABLETS A DAY
     Dates: start: 20090601

REACTIONS (1)
  - DEEP VEIN THROMBOSIS [None]
